FAERS Safety Report 16352402 (Version 2)
Quarter: 2019Q2

REPORT INFORMATION
  Report Type: Spontaneous
  Country: US (occurrence: US)
  Receive Date: 20190524
  Receipt Date: 20190624
  Transmission Date: 20190711
  Serious: Yes (Life-Threatening, Hospitalization, Other)
  Sender: FDA-Public Use
  Company Number: US-BAYER-2019-097437

PATIENT
  Age: 40 Year
  Sex: Female

DRUGS (2)
  1. MIRENA [Suspect]
     Active Substance: LEVONORGESTREL
     Indication: CONTRACEPTION
     Dosage: 20 MG/24HR, CONT
     Route: 015
     Dates: start: 20190301, end: 20190330
  2. MIRENA [Suspect]
     Active Substance: LEVONORGESTREL
     Indication: CONTRACEPTION

REACTIONS (14)
  - Septic shock [Recovering/Resolving]
  - Procedural haemorrhage [None]
  - Influenza like illness [Recovering/Resolving]
  - Pyrexia [Recovering/Resolving]
  - Vulvovaginal discomfort [Recovering/Resolving]
  - Staphylococcal infection [Recovering/Resolving]
  - Streptococcal infection [Recovering/Resolving]
  - Pelvic pain [Recovering/Resolving]
  - Suprapubic pain [Recovering/Resolving]
  - Vaginal discharge [Recovering/Resolving]
  - Streptococcal sepsis [Recovering/Resolving]
  - Device physical property issue [None]
  - Abdominal tenderness [Recovering/Resolving]
  - Salpingo-oophoritis [Recovering/Resolving]

NARRATIVE: CASE EVENT DATE: 201903
